FAERS Safety Report 25318053 (Version 1)
Quarter: 2025Q2

REPORT INFORMATION
  Report Type: Spontaneous
  Country: US (occurrence: US)
  Receive Date: 20250515
  Receipt Date: 20250515
  Transmission Date: 20250717
  Serious: No
  Sender: Unknown Manufacturer
  Company Number: US-TRAVERE-2024TVT00157

PATIENT

DRUGS (1)
  1. CHOLBAM [Suspect]
     Active Substance: CHOLIC ACID
     Indication: Product used for unknown indication
     Route: 048

REACTIONS (1)
  - Drug ineffective [Unknown]
